FAERS Safety Report 8243343-6 (Version None)
Quarter: 2012Q1

REPORT INFORMATION
  Report Type: 
  Country: None (occurrence: None)
  Receive Date: 20120329
  Receipt Date: 20120328
  Transmission Date: 20120608
  Serious: Yes (Death)
  Sender: FDA-Public Use
  Company Number: DK-B.I. PHARMACEUTICALS,INC./RIDGEFIELD-2012-SW-00219DB

PATIENT
  Sex: Female

DRUGS (4)
  1. RISPERIDON ^ACTAVIS^ [Concomitant]
     Indication: ANXIETY
     Dates: start: 20110914
  2. MAGNYL ^DAK^ [Concomitant]
     Indication: DEEP VEIN THROMBOSIS
     Dates: start: 20040801
  3. PRADAXA [Suspect]
     Indication: DEEP VEIN THROMBOSIS
     Route: 048
     Dates: start: 20120116
  4. ACETAMINOPHEN [Concomitant]
     Indication: PAIN
     Dates: start: 20080101

REACTIONS (1)
  - HAEMORRHAGE [None]
